FAERS Safety Report 5086548-8 (Version None)
Quarter: 2006Q3

REPORT INFORMATION
  Report Type: 
  Country: None (occurrence: None)
  Receive Date: 20060703
  Receipt Date: 20060214
  Transmission Date: 20061208
  Serious: No
  Sender: FDA-Public Use
  Company Number: 2006S1001340

PATIENT
  Age: 54 Year
  Sex: Female

DRUGS (11)
  1. CLOZAPINE [Suspect]
     Indication: SCHIZOAFFECTIVE DISORDER
     Dosage: SEE IMAGE
     Route: 048
     Dates: start: 20060201
  2. ASPIRIN [Concomitant]
  3. DOCUSATE SODIUM [Concomitant]
  4. GEMFIBROZIL [Concomitant]
  5. IBUPROFEN [Concomitant]
  6. LEVOTHYROXINE SODIUM [Concomitant]
  7. RISPERIDONE [Concomitant]
  8. NICOTINE [Concomitant]
  9. INSULIN [Concomitant]
  10. LISINOPRIL [Concomitant]
  11. METFORMIN HCL [Concomitant]

REACTIONS (2)
  - GRANULOCYTOPENIA [None]
  - LEUKOPENIA [None]
